FAERS Safety Report 10430460 (Version 1)
Quarter: 2014Q3

REPORT INFORMATION
  Report Type: Other
  Country: GB (occurrence: GB)
  Receive Date: 20140904
  Receipt Date: 20140904
  Transmission Date: 20150326
  Serious: Yes (Disabling)
  Sender: FDA-Public Use
  Company Number: GB-MYLAN-2014M1002831

PATIENT

DRUGS (15)
  1. METOCLOPRAMIDE. [Concomitant]
     Active Substance: METOCLOPRAMIDE
     Dates: start: 20140711
  2. AZATHIOPRINE. [Suspect]
     Active Substance: AZATHIOPRINE
     Dates: start: 20140808
  3. ADCAL [Concomitant]
     Dates: start: 20140613
  4. AZATHIOPRINE. [Concomitant]
     Active Substance: AZATHIOPRINE
     Dates: start: 20140711
  5. PREDNISOLONE. [Concomitant]
     Active Substance: PREDNISOLONE
     Dates: start: 20140519
  6. ZOMORPH [Concomitant]
     Active Substance: MORPHINE SULFATE
     Dates: start: 20140519
  7. AMITRIPTYLINE HYDROCHLORIDE. [Concomitant]
     Active Substance: AMITRIPTYLINE HYDROCHLORIDE
     Dates: start: 20140411
  8. LACTULOSE. [Concomitant]
     Active Substance: LACTULOSE
     Dates: start: 20140711
  9. VOLUMATIC [Concomitant]
     Dates: start: 20140414
  10. EZETIMIBE. [Concomitant]
     Active Substance: EZETIMIBE
     Dates: start: 20140411
  11. DICLOFENAC SODIUM. [Concomitant]
     Active Substance: DICLOFENAC SODIUM
     Dates: start: 20140411
  12. ERYTHROMYCIN. [Concomitant]
     Active Substance: ERYTHROMYCIN
     Dates: start: 20140728
  13. GLYCERYL TRINITRATE [Concomitant]
     Active Substance: NITROGLYCERIN
     Dates: start: 20140804
  14. OMEPRAZOLE. [Concomitant]
     Active Substance: OMEPRAZOLE
     Dates: start: 20140411
  15. SALBUTAMOL [Concomitant]
     Active Substance: ALBUTEROL
     Dates: start: 20140414

REACTIONS (2)
  - Hyperhidrosis [Recovering/Resolving]
  - Chills [Recovering/Resolving]

NARRATIVE: CASE EVENT DATE: 20140808
